FAERS Safety Report 25679960 (Version 1)
Quarter: 2025Q3

REPORT INFORMATION
  Report Type: Spontaneous
  Country: US (occurrence: US)
  Receive Date: 20250814
  Receipt Date: 20250814
  Transmission Date: 20251020
  Serious: No
  Sender: INSYS
  Company Number: US-INSYS Therapeutics, Inc-INS201605-BEN202505-000005

PATIENT
  Sex: Female

DRUGS (1)
  1. SYNDROS [Suspect]
     Active Substance: DRONABINOL
     Indication: Increased appetite

REACTIONS (1)
  - Product use in unapproved indication [Unknown]
